FAERS Safety Report 9198782 (Version 2)
Quarter: 2013Q3

REPORT INFORMATION
  Report Type: Report from Study
  Country: JP (occurrence: JP)
  Receive Date: 20130329
  Receipt Date: 20130802
  Transmission Date: 20140515
  Serious: Yes (Life-Threatening)
  Sender: FDA-Public Use
  Company Number: JP-PFIZER INC-2013096806

PATIENT
  Age: 77 Year
  Sex: Female
  Weight: 56.2 kg

DRUGS (5)
  1. XALKORI [Suspect]
     Indication: NON-SMALL CELL LUNG CANCER
     Dosage: 250 MG, 2X/DAY
     Route: 048
     Dates: start: 20130218, end: 20130318
  2. PRIMPERAN [Concomitant]
     Dosage: 5 MG, 3X/DAY
     Route: 048
     Dates: end: 20130219
  3. PRIMPERAN [Concomitant]
     Dosage: 10 MG, 3X/DAY
     Route: 048
     Dates: start: 20130220, end: 20130225
  4. BFLUID [Concomitant]
     Dosage: 1000 ML, 1X/DAY
  5. CEFEPIME HYDROCHLORIDE [Concomitant]
     Dosage: 1 G, 2X/DAY
     Route: 042
     Dates: start: 20130310, end: 20130318

REACTIONS (1)
  - Pneumonia [Recovered/Resolved]
